FAERS Safety Report 24129621 (Version 1)
Quarter: 2024Q3

REPORT INFORMATION
  Report Type: Spontaneous
  Country: US (occurrence: US)
  Receive Date: 20240724
  Receipt Date: 20240724
  Transmission Date: 20241016
  Serious: No
  Sender: ABBVIE
  Company Number: US-ALLERGAN-2132364US

PATIENT
  Age: 32 Year
  Sex: Female
  Weight: 156 kg

DRUGS (2)
  1. LILETTA [Suspect]
     Active Substance: LEVONORGESTREL
     Indication: Contraception
     Dosage: TIME INTERVAL: AS NECESSARY: FORM STRENGTH: 52 MG
     Route: 015
     Dates: start: 20210819, end: 20210923
  2. AMOXICILLIN [Concomitant]
     Active Substance: AMOXICILLIN
     Indication: Prophylaxis
     Dosage: TIME INTERVAL: 0.33333333 DAYS: FOR 5 DAYS
     Route: 048
     Dates: start: 20210819, end: 20210823

REACTIONS (1)
  - Device expulsion [Recovered/Resolved with Sequelae]
